FAERS Safety Report 6054977-1 (Version None)
Quarter: 2009Q1

REPORT INFORMATION
  Report Type: 
  Country: None (occurrence: None)
  Receive Date: 20090122
  Receipt Date: 20090120
  Transmission Date: 20090719
  Serious: Yes (Hospitalization, Other)
  Sender: FDA-Public Use
  Company Number: 2008SP012936

PATIENT
  Age: 57 Year
  Sex: Male
  Weight: 62.3 kg

DRUGS (8)
  1. PEG-INTRON [Suspect]
     Indication: HEPATIC CIRRHOSIS
     Dosage: 1.0 MCG/KG;QW;SC
     Route: 058
     Dates: start: 20071221, end: 20080612
  2. RIBAVIRIN [Suspect]
     Indication: HEPATIC CIRRHOSIS
     Dosage: 800 MG;QD;PO
     Route: 048
     Dates: start: 20071221, end: 20080617
  3. ALINAMIN-F [Concomitant]
  4. METHYCOOL [Concomitant]
  5. FAMOTIDINE D [Concomitant]
  6. PARIET [Concomitant]
  7. LORFENAMIN [Concomitant]
  8. DIACORT [Concomitant]

REACTIONS (4)
  - ATRIAL FIBRILLATION [None]
  - COLONIC POLYP [None]
  - LYMPHOMA [None]
  - METASTASES TO BONE [None]
